FAERS Safety Report 12471794 (Version 1)
Quarter: 2016Q2

REPORT INFORMATION
  Report Type: Spontaneous
  Country: US (occurrence: None)
  Receive Date: 20160615
  Receipt Date: 20160615
  Transmission Date: 20160815
  Serious: Yes (Hospitalization)
  Sender: FDA-Public Use
  Company Number: None

PATIENT
  Age: 93 Year
  Sex: Male
  Weight: 56.8 kg

DRUGS (1)
  1. XARELTO [Suspect]
     Active Substance: RIVAROXABAN
     Indication: ATRIAL FIBRILLATION
     Dosage: CHRONIC
     Route: 048

REACTIONS (6)
  - Dyspnoea [None]
  - Haemorrhagic anaemia [None]
  - Asthenia [None]
  - Retroperitoneal haemorrhage [None]
  - Subendocardial ischaemia [None]
  - Mesenteric haemorrhage [None]

NARRATIVE: CASE EVENT DATE: 20151224
